FAERS Safety Report 16868130 (Version 6)
Quarter: 2022Q3

REPORT INFORMATION
  Report Type: Spontaneous
  Country: US (occurrence: US)
  Receive Date: 20190930
  Receipt Date: 20220913
  Transmission Date: 20221027
  Serious: No
  Sender: FDA-Public Use
  Company Number: US-PFIZER INC-2019421418

PATIENT
  Age: 57 Year
  Sex: Female
  Weight: 97 kg

DRUGS (10)
  1. DOCETAXEL [Suspect]
     Active Substance: DOCETAXEL
     Indication: Breast cancer female
     Dosage: 145 MG, CYCLIC (04 CYCLES, EVERY THREE WEEKS)
     Dates: start: 20150526, end: 20150720
  2. DOCETAXEL [Suspect]
     Active Substance: DOCETAXEL
     Indication: Breast cancer female
     Dosage: 145 MG, CYCLIC (04 CYCLES, EVERY THREE WEEKS)
     Dates: start: 20150526, end: 20150720
  3. DOCEFREZ [Suspect]
     Active Substance: DOCETAXEL ANHYDROUS
     Indication: Chemotherapy
     Dosage: UNK
     Dates: start: 20150526, end: 20150727
  4. NEOSAR [Concomitant]
     Active Substance: CYCLOPHOSPHAMIDE
     Indication: Chemotherapy
     Dosage: UNK
  5. TAXOTERE [Concomitant]
     Active Substance: DOCETAXEL
     Indication: Chemotherapy
     Dosage: UNK
  6. CYTOXAN [Concomitant]
     Active Substance: CYCLOPHOSPHAMIDE
     Indication: Chemotherapy
     Dosage: UNK
  7. LOPRESSOR [Concomitant]
     Active Substance: METOPROLOL TARTRATE
     Dosage: UNK
  8. HYDROXYUREA [Concomitant]
     Active Substance: HYDROXYUREA
     Dosage: UNK
     Dates: start: 1991, end: 2016
  9. REGLAN [Concomitant]
     Active Substance: METOCLOPRAMIDE HYDROCHLORIDE
     Dosage: UNK
  10. COUMADIN [Concomitant]
     Active Substance: WARFARIN SODIUM
     Dosage: UNK
     Dates: end: 201912

REACTIONS (5)
  - Alopecia [Not Recovered/Not Resolved]
  - Hair disorder [Not Recovered/Not Resolved]
  - Hair texture abnormal [Not Recovered/Not Resolved]
  - Hair colour changes [Not Recovered/Not Resolved]
  - Madarosis [Not Recovered/Not Resolved]

NARRATIVE: CASE EVENT DATE: 20151001
